FAERS Safety Report 5219807-6 (Version None)
Quarter: 2007Q1

REPORT INFORMATION
  Report Type: 
  Country: None (occurrence: None)
  Receive Date: 20070125
  Receipt Date: 20070124
  Transmission Date: 20070707
  Serious: Yes (Hospitalization)
  Sender: FDA-Public Use
  Company Number: BR-BOEHRINGER INGELHEIM PHARMACEUTICALS, INC.-2007-BP-01131BR

PATIENT
  Age: 82 Year
  Sex: Female

DRUGS (6)
  1. SPIRIVA [Suspect]
     Indication: BRONCHIECTASIS
     Route: 055
     Dates: start: 20061001, end: 20061001
  2. SPIRIVA [Suspect]
     Indication: EMPHYSEMA
  3. LABIRIN [Concomitant]
  4. TEOLONG [Concomitant]
  5. RETEMIC [Concomitant]
  6. BROMAZEPAN [Concomitant]

REACTIONS (1)
  - HAEMOPTYSIS [None]
